FAERS Safety Report 24554593 (Version 1)
Quarter: 2024Q4

REPORT INFORMATION
  Report Type: Spontaneous
  Country: BG (occurrence: BG)
  Receive Date: 20241028
  Receipt Date: 20241028
  Transmission Date: 20250115
  Serious: Yes (Other)
  Sender: IMMUNOCORE
  Company Number: BG-IMMUNOCORE, LTD-2024-IMC-003279

PATIENT

DRUGS (2)
  1. KIMMTRAK [Suspect]
     Active Substance: TEBENTAFUSP-TEBN
     Indication: Metastatic ocular melanoma
     Dosage: UNK
     Dates: start: 20240731
  2. KIMMTRAK [Suspect]
     Active Substance: TEBENTAFUSP-TEBN
     Dosage: 68 MICROGRAM ONCE A WEEK
     Route: 042

REACTIONS (2)
  - Malignant neoplasm progression [Unknown]
  - Hepatic enzyme abnormal [Unknown]
